FAERS Safety Report 6795108-X (Version None)
Quarter: 2010Q2

REPORT INFORMATION
  Report Type: 
  Country: None (occurrence: None)
  Receive Date: 20100625
  Receipt Date: 20100625
  Transmission Date: 20101027
  Serious: Yes (Hospitalization)
  Sender: FDA-Public Use
  Company Number: PHHO2008FR09173

PATIENT
  Sex: Male
  Weight: 80 kg

DRUGS (1)
  1. AFINITOR [Suspect]
     Indication: ENDOCRINE NEOPLASM
     Dosage: 10 MG DAILY
     Route: 048
     Dates: start: 20080313

REACTIONS (1)
  - ANAEMIA [None]
